FAERS Safety Report 19976924 (Version 1)
Quarter: 2021Q4

REPORT INFORMATION
  Report Type: Spontaneous
  Country: US (occurrence: US)
  Receive Date: 20211020
  Receipt Date: 20211020
  Transmission Date: 20220303
  Serious: No
  Sender: FDA-Public Use
  Company Number: US-ALLERGAN-2127143US

PATIENT
  Age: 69 Year
  Sex: Female

DRUGS (4)
  1. LINZESS [Suspect]
     Active Substance: LINACLOTIDE
     Indication: Irritable bowel syndrome
     Dosage: 145 ?G, QAM, 30 MINUTES BEFORE EATING
     Dates: start: 20210723
  2. LINZESS [Suspect]
     Active Substance: LINACLOTIDE
     Indication: Abdominal pain upper
  3. LINZESS [Suspect]
     Active Substance: LINACLOTIDE
     Indication: Abdominal distension
  4. MAGNESIUM [Concomitant]
     Active Substance: MAGNESIUM

REACTIONS (3)
  - Diarrhoea [Recovered/Resolved]
  - Constipation [Recovering/Resolving]
  - Drug ineffective [Unknown]

NARRATIVE: CASE EVENT DATE: 20210723
